FAERS Safety Report 17147212 (Version 1)
Quarter: 2019Q4

REPORT INFORMATION
  Report Type: Spontaneous
  Country: US (occurrence: US)
  Receive Date: 20191212
  Receipt Date: 20191212
  Transmission Date: 20200122
  Serious: Yes (Other)
  Sender: FDA-Public Use
  Company Number: US-GLAXOSMITHKLINE-US2019GSK225014

PATIENT
  Sex: Female

DRUGS (3)
  1. OMEPRAZOLE. [Suspect]
     Active Substance: OMEPRAZOLE
     Indication: DYSPEPSIA
     Dosage: 40 MG, QD
     Route: 065
  2. OMEPRAZOLE. [Suspect]
     Active Substance: OMEPRAZOLE
     Indication: PRODUCT USED FOR UNKNOWN INDICATION
     Dosage: UNK
     Route: 065
  3. PREVACID [Suspect]
     Active Substance: LANSOPRAZOLE
     Indication: DYSPEPSIA
     Dosage: 30 MG, QD
     Route: 065

REACTIONS (8)
  - Acute kidney injury [Not Recovered/Not Resolved]
  - Nephrolithiasis [Unknown]
  - Dialysis [Not Recovered/Not Resolved]
  - Nephropathy [Unknown]
  - Hypertensive nephropathy [Unknown]
  - End stage renal disease [Not Recovered/Not Resolved]
  - Malignant renal hypertension [Unknown]
  - Chronic kidney disease [Not Recovered/Not Resolved]
